FAERS Safety Report 12745695 (Version 1)
Quarter: 2016Q3

REPORT INFORMATION
  Report Type: Report from Study
  Country: RU (occurrence: RU)
  Receive Date: 20160915
  Receipt Date: 20160915
  Transmission Date: 20161109
  Serious: Yes (Disabling)
  Sender: FDA-Public Use
  Company Number: PHHO2016RU013024

PATIENT
  Sex: Female
  Weight: 59 kg

DRUGS (1)
  1. AIN457 [Suspect]
     Active Substance: SECUKINUMAB
     Indication: PSORIASIS
     Dosage: 300 MG, (2X150MG PRE-FILLED SYRINGE) PER 4 WEEKS
     Route: 058
     Dates: start: 20160114, end: 20160630

REACTIONS (1)
  - Thyroid cancer [Not Recovered/Not Resolved]
